FAERS Safety Report 10311969 (Version 3)
Quarter: 2022Q3

REPORT INFORMATION
  Report Type: Spontaneous
  Country: CA (occurrence: None)
  Receive Date: 20140717
  Receipt Date: 20220701
  Transmission Date: 20221026
  Serious: Yes (Hospitalization)
  Sender: FDA-Public Use
  Company Number: CA-ROCHE-1435333

PATIENT
  Age: 73 Year
  Sex: Male
  Weight: 74 kg

DRUGS (13)
  1. AVASTIN [Suspect]
     Active Substance: BEVACIZUMAB
     Indication: Colorectal cancer metastatic
     Route: 042
  2. ELOXATIN [Suspect]
     Active Substance: OXALIPLATIN
     Indication: Colorectal cancer metastatic
     Route: 042
  3. LEUCOVORIN [Suspect]
     Active Substance: LEUCOVORIN
     Indication: Colorectal cancer metastatic
     Route: 042
  4. FLUOROURACIL [Suspect]
     Active Substance: FLUOROURACIL
     Indication: Colorectal cancer metastatic
     Route: 040
  5. FLUOROURACIL [Suspect]
     Active Substance: FLUOROURACIL
     Route: 042
  6. BEVACIZUMAB [Suspect]
     Active Substance: BEVACIZUMAB
     Indication: Product used for unknown indication
     Route: 042
  7. ASPIRIN [Concomitant]
     Active Substance: ASPIRIN
  8. ATORVASTATIN CALCIUM [Concomitant]
     Active Substance: ATORVASTATIN CALCIUM
  9. LITHIUM CARBONATE [Concomitant]
     Active Substance: LITHIUM CARBONATE
  10. PERINDOPRIL [Concomitant]
     Active Substance: PERINDOPRIL
  11. SEROQUEL [Concomitant]
     Active Substance: QUETIAPINE FUMARATE
  12. PERINDOPRIL [Concomitant]
     Active Substance: PERINDOPRIL
  13. QUETIAPINE FUMARATE [Concomitant]
     Active Substance: QUETIAPINE FUMARATE

REACTIONS (4)
  - Dehydration [Recovered/Resolved]
  - Delirium [Recovered/Resolved]
  - Acute kidney injury [Recovered/Resolved]
  - Thrombotic thrombocytopenic purpura [Recovered/Resolved]
